FAERS Safety Report 8891006 (Version 1)
Quarter: 2012Q4

REPORT INFORMATION
  Report Type: 
  Country: US (occurrence: US)
  Receive Date: 20121107
  Receipt Date: 20121107
  Transmission Date: 20130627
  Serious: No
  Sender: FDA-Public Use
  Company Number: US-VERTEX PHARMACEUTICAL INC.-AE-2012-011590

PATIENT
  Sex: Male

DRUGS (1)
  1. KALYDECO [Suspect]
     Indication: CYSTIC FIBROSIS
     Route: 048
     Dates: start: 20120327

REACTIONS (3)
  - Ear pain [Recovered/Resolved]
  - Tinnitus [Not Recovered/Not Resolved]
  - Dizziness [Recovered/Resolved]
